FAERS Safety Report 5143891-1 (Version None)
Quarter: 2006Q4

REPORT INFORMATION
  Report Type: 
  Country: None (occurrence: None)
  Receive Date: 20061102
  Receipt Date: 20061102
  Transmission Date: 20070319
  Serious: Yes (Other)
  Sender: FDA-Public Use
  Company Number: None

PATIENT
  Age: 84 Year
  Sex: Male

DRUGS (1)
  1. AVANDIA [Suspect]
     Indication: DIABETES MELLITUS
     Dosage: 8 MG 1/2 BID
     Dates: end: 20060601

REACTIONS (40)
  - ALBUMIN URINE PRESENT [None]
  - AMNESIA [None]
  - ANAEMIA [None]
  - ASTHENIA [None]
  - ATELECTASIS [None]
  - BLOOD GLUCOSE INCREASED [None]
  - BLOOD PRESSURE SYSTOLIC INCREASED [None]
  - BODY TEMPERATURE DECREASED [None]
  - BRADYCARDIA [None]
  - CAROTID ARTERY STENOSIS [None]
  - CEREBRAL INFARCTION [None]
  - CHEST X-RAY ABNORMAL [None]
  - CHONDROCALCINOSIS [None]
  - CONFUSIONAL STATE [None]
  - COUGH [None]
  - CYTOLOGY ABNORMAL [None]
  - DIZZINESS [None]
  - FLUID IMBALANCE [None]
  - FLUID RETENTION [None]
  - GAIT DISTURBANCE [None]
  - GENERALISED OEDEMA [None]
  - GLYCOSYLATED HAEMOGLOBIN INCREASED [None]
  - GRIP STRENGTH DECREASED [None]
  - HAEMOPTYSIS [None]
  - HYPERPARATHYROIDISM [None]
  - LUNG INFILTRATION [None]
  - LUNG NEOPLASM [None]
  - MYOPATHY [None]
  - PARAESTHESIA [None]
  - PLEURAL EFFUSION [None]
  - PLEURAL FIBROSIS [None]
  - PNEUMONIA [None]
  - PULMONARY ARTERIAL PRESSURE INCREASED [None]
  - RED BLOOD CELL SEDIMENTATION RATE INCREASED [None]
  - RENAL ARTERY STENOSIS [None]
  - RENAL FAILURE [None]
  - SYNCOPE [None]
  - TRICUSPID VALVE INCOMPETENCE [None]
  - VASCULAR CALCIFICATION [None]
  - WEIGHT DECREASED [None]
